FAERS Safety Report 5524620-6 (Version None)
Quarter: 2007Q4

REPORT INFORMATION
  Report Type: 
  Country: None (occurrence: None)
  Receive Date: 20071123
  Receipt Date: 20071114
  Transmission Date: 20080405
  Serious: Yes (Death, Hospitalization)
  Sender: FDA-Public Use
  Company Number: US-ROCHE-531412

PATIENT
  Age: 69 Year
  Sex: Male

DRUGS (5)
  1. NAPROSYN [Suspect]
     Indication: DRUG USE FOR UNKNOWN INDICATION
     Route: 065
     Dates: end: 20070801
  2. PLAVIX [Suspect]
     Dosage: MANUFACTURER SANOFI AVENTIS.  ON MEDICATION FOR 4 OR 5 YEARS
     Route: 048
     Dates: start: 20020101
  3. AMBIEN [Suspect]
     Indication: SOMNOLENCE
     Route: 065
     Dates: start: 20070427
  4. LASIX [Suspect]
     Indication: DRUG USE FOR UNKNOWN INDICATION
     Route: 065
     Dates: end: 20070801
  5. COLCHICINE [Suspect]
     Indication: DRUG USE FOR UNKNOWN INDICATION
     Route: 065
     Dates: end: 20070801

REACTIONS (9)
  - ABNORMAL BEHAVIOUR [None]
  - CARDIAC FAILURE CONGESTIVE [None]
  - CONTUSION [None]
  - DISORIENTATION [None]
  - DYSPNOEA [None]
  - FALL [None]
  - PERICARDIAL EFFUSION [None]
  - PULMONARY OEDEMA [None]
  - RENAL DISORDER [None]
